FAERS Safety Report 18545756 (Version 1)
Quarter: 2020Q4

REPORT INFORMATION
  Report Type: Spontaneous
  Country: US (occurrence: US)
  Receive Date: 20201125
  Receipt Date: 20201125
  Transmission Date: 20210114
  Serious: Yes (Hospitalization)
  Sender: FDA-Public Use
  Company Number: US-CATALYST PHARMACEUTICALS, INC-2020CAT00570

PATIENT
  Age: 54 Year
  Sex: Male
  Weight: 86.17 kg

DRUGS (7)
  1. MULTIVITAMIN [Concomitant]
     Active Substance: VITAMINS
  2. FIRDAPSE [Suspect]
     Active Substance: AMIFAMPRIDINE PHOSPHATE
     Dosage: INCREASED HALF A TABLET EVERY 4TH DAY
     Route: 048
     Dates: start: 20201010, end: 2020
  3. FIRDAPSE [Suspect]
     Active Substance: AMIFAMPRIDINE PHOSPHATE
     Dosage: 20 MG, 4X/DAY
     Route: 048
     Dates: start: 202011
  4. FIRDAPSE [Suspect]
     Active Substance: AMIFAMPRIDINE PHOSPHATE
     Indication: MYASTHENIC SYNDROME
     Dosage: 5 MG, 3X/DAY
     Route: 048
     Dates: start: 20201007, end: 20201009
  5. ^THYROID^ [Concomitant]
     Dosage: ^40 MG^, 1X/DAY
     Route: 048
     Dates: start: 201006
  6. VALASARTAN [Concomitant]
     Dosage: 40 MG, 1X/DAY
     Dates: start: 201507
  7. ADDERALL [Concomitant]
     Active Substance: AMPHETAMINE ASPARTATE\AMPHETAMINE SULFATE\DEXTROAMPHETAMINE SACCHARATE\DEXTROAMPHETAMINE SULFATE

REACTIONS (5)
  - Dysphagia [Not Recovered/Not Resolved]
  - Muscular weakness [Not Recovered/Not Resolved]
  - Plasmapheresis [Unknown]
  - Tongue movement disturbance [Not Recovered/Not Resolved]
  - Cranial nerve disorder [Not Recovered/Not Resolved]

NARRATIVE: CASE EVENT DATE: 2020
